FAERS Safety Report 21637780 (Version 4)
Quarter: 2023Q2

REPORT INFORMATION
  Report Type: Spontaneous
  Country: ES (occurrence: ES)
  Receive Date: 20221124
  Receipt Date: 20230512
  Transmission Date: 20230722
  Serious: Yes (Hospitalization, Other)
  Sender: FDA-Public Use
  Company Number: None

PATIENT
  Age: 51 Year
  Sex: Male
  Weight: 108 kg

DRUGS (15)
  1. DOXORUBICIN [Suspect]
     Active Substance: DOXORUBICIN
     Indication: Peripheral T-cell lymphoma unspecified stage IV
     Dosage: UNK, CYCLICAL (RECEIVED 6 CYCLE OF CHOEP REGIMEN); (6 CYCLES)
     Route: 065
  2. ETOPOSIDE [Suspect]
     Active Substance: ETOPOSIDE
     Indication: Peripheral T-cell lymphoma unspecified stage IV
     Dosage: 212 MILLIGRAM, CYCLICAL (RECEIVED 6 CYCLE OF CHOEP REGIMEN)
     Route: 065
     Dates: start: 202002, end: 2020
  3. ETOPOSIDE [Suspect]
     Active Substance: ETOPOSIDE
     Indication: Bone marrow conditioning regimen
     Dosage: UNK, CYCLICAL; (RECEIVED BEAM REGIMEN); (6 CYCLES), CHOEP
     Route: 065
  4. PREDNISOLONE [Suspect]
     Active Substance: PREDNISOLONE
     Indication: Peripheral T-cell lymphoma unspecified stage IV
     Dosage: UNK, CYCLICAL (RECEIVED 6 CYCLE OF CHOEP REGIMEN)
     Route: 065
  5. METHOTREXATE [Suspect]
     Active Substance: METHOTREXATE
     Indication: Peripheral T-cell lymphoma unspecified stage IV
     Dosage: UNK (TRIPLE INTRATHECAL THERAPY)
     Route: 037
  6. CYCLOPHOSPHAMIDE [Suspect]
     Active Substance: CYCLOPHOSPHAMIDE
     Indication: Peripheral T-cell lymphoma unspecified stage IV
     Dosage: UNK, CYCLICAL (RECEIVED 6 CYCLE OF CHOEP REGIMEN)
     Route: 065
  7. VINCRISTINE [Suspect]
     Active Substance: VINCRISTINE
     Indication: Peripheral T-cell lymphoma unspecified stage IV
     Dosage: UNK, CYCLICAL (RECEIVED 6 CYCLE OF CHOEP REGIMEN)
     Route: 065
  8. CYTARABINE [Suspect]
     Active Substance: CYTARABINE
     Indication: Peripheral T-cell lymphoma unspecified stage IV
     Dosage: 424 MILLIGRAM, BEAM REGIMEN
     Route: 065
     Dates: start: 202002, end: 2020
  9. CYTARABINE [Suspect]
     Active Substance: CYTARABINE
     Indication: Bone marrow conditioning regimen
     Dosage: UNK, CYCLICAL; (RECEIVED BEAM REGIMEN); (6 CYCLES)
     Route: 065
  10. CYTARABINE [Suspect]
     Active Substance: CYTARABINE
     Dosage: UNK (TRIPLE INTRATHECAL THERAPY)
     Route: 037
  11. HYDROCORTISONE [Suspect]
     Active Substance: HYDROCORTISONE
     Indication: Peripheral T-cell lymphoma unspecified stage IV
     Dosage: UNK (TRIPLE INTRATHECAL THERAPY)
     Route: 037
  12. CARMUSTINE [Suspect]
     Active Substance: CARMUSTINE
     Indication: Peripheral T-cell lymphoma unspecified stage IV
     Dosage: 570 MILLIGRAM/SQ. METER, CYCLICAL; (BEAM REGIMEN); (6 CYCLES)
     Route: 065
     Dates: start: 202002
  13. CARMUSTINE [Suspect]
     Active Substance: CARMUSTINE
     Indication: Bone marrow conditioning regimen
     Dosage: 636 MG + 570 MG SAME DAY
     Route: 065
     Dates: start: 202002
  14. MELPHALAN [Suspect]
     Active Substance: MELPHALAN
     Indication: Peripheral T-cell lymphoma unspecified stage IV
     Dosage: UNK, CYCLICAL; (RECEIVED BEAM REGIMEN); (6 CYCLES)
     Route: 065
     Dates: start: 202002, end: 2020
  15. MELPHALAN [Suspect]
     Active Substance: MELPHALAN
     Indication: Bone marrow conditioning regimen

REACTIONS (7)
  - Pulmonary toxicity [Recovered/Resolved]
  - Organising pneumonia [Recovered/Resolved]
  - Respiratory failure [Recovered/Resolved]
  - Lung infiltration [Recovered/Resolved]
  - COVID-19 pneumonia [Recovered/Resolved]
  - Papilloma viral infection [Unknown]
  - Off label use [Unknown]

NARRATIVE: CASE EVENT DATE: 20200101
